FAERS Safety Report 5008149-X (Version None)
Quarter: 2006Q2

REPORT INFORMATION
  Report Type: 
  Country: None (occurrence: None)
  Receive Date: 20060404
  Receipt Date: 20050922
  Transmission Date: 20061013
  Serious: Yes (Other)
  Sender: FDA-Public Use
  Company Number: 2005133692

PATIENT
  Age: 29 Year
  Sex: Male

DRUGS (4)
  1. GEODON [Suspect]
     Indication: SCHIZOAFFECTIVE DISORDER
     Dosage: 80 MG (80 MG, 1 IN 1 D), ORAL
     Route: 048
     Dates: start: 20050901, end: 20050920
  2. GEODON [Suspect]
     Indication: SCHIZOPHRENIA
     Dosage: 80 MG (80 MG, 1 IN 1 D), ORAL
     Route: 048
     Dates: start: 20050901, end: 20050920
  3. WELLBUTRIN SR [Concomitant]
  4. EFFEXOR [Concomitant]

REACTIONS (2)
  - DYSTONIA [None]
  - PAIN [None]
